FAERS Safety Report 12388650 (Version 1)
Quarter: 2016Q2

REPORT INFORMATION
  Report Type: Spontaneous
  Country: US (occurrence: None)
  Receive Date: 20160519
  Receipt Date: 20160519
  Transmission Date: 20160815
  Serious: Yes (Disabling)
  Sender: FDA-Public Use
  Company Number: None

PATIENT
  Age: 52 Year
  Sex: Female
  Weight: 107.05 kg

DRUGS (4)
  1. LEVAQUIN [Suspect]
     Active Substance: LEVOFLOXACIN
     Indication: APPENDICITIS
     Route: 042
     Dates: start: 20150709, end: 20150718
  2. SYNTHROID [Concomitant]
     Active Substance: LEVOTHYROXINE SODIUM
  3. METFORMIN [Concomitant]
     Active Substance: METFORMIN HYDROCHLORIDE
  4. GLYBURIDE. [Concomitant]
     Active Substance: GLYBURIDE

REACTIONS (7)
  - Arthralgia [None]
  - Bone swelling [None]
  - Swelling [None]
  - Tendonitis [None]
  - Tendon pain [None]
  - Chondropathy [None]
  - Joint range of motion decreased [None]

NARRATIVE: CASE EVENT DATE: 20150812
